FAERS Safety Report 21470057 (Version 1)
Quarter: 2022Q4

REPORT INFORMATION
  Report Type: Spontaneous
  Country: US (occurrence: US)
  Receive Date: 20221018
  Receipt Date: 20221018
  Transmission Date: 20230113
  Serious: No
  Sender: FDA-Public Use
  Company Number: US-TAKEDA-2022TUS073506

PATIENT
  Sex: Male
  Weight: 86 kg

DRUGS (2)
  1. MOTEGRITY [Suspect]
     Active Substance: PRUCALOPRIDE SUCCINATE
     Indication: Impaired gastric emptying
     Dosage: 1 MILLIGRAM, QD
     Route: 065
     Dates: end: 20221008
  2. MOTEGRITY [Suspect]
     Active Substance: PRUCALOPRIDE SUCCINATE
     Dosage: 2 MILLIGRAM, QD
     Route: 065

REACTIONS (4)
  - Myalgia [Unknown]
  - Rebound effect [Unknown]
  - Potentiating drug interaction [Unknown]
  - Insurance issue [Unknown]
